FAERS Safety Report 4566774-4 (Version None)
Quarter: 2005Q1

REPORT INFORMATION
  Report Type: 
  Country: None (occurrence: None)
  Receive Date: 20050201
  Receipt Date: 20011002
  Transmission Date: 20050727
  Serious: Yes (Other)
  Sender: FDA-Public Use
  Company Number: US-BRISTOL-MYERS SQUIBB COMPANY-11538139

PATIENT
  Age: 34 Year
  Sex: Male

DRUGS (7)
  1. STADOL [Suspect]
     Indication: BACK PAIN
     Route: 045
     Dates: start: 19950101
  2. STADOL [Suspect]
     Indication: HEADACHE
     Route: 045
     Dates: start: 19950101
  3. STADOL [Suspect]
     Route: 042
  4. HYDROCODONE + ACETAMINOPHEN [Concomitant]
  5. PROPOXYPHENE NAPSYLATE [Concomitant]
  6. BUTALBITAL [Concomitant]
  7. FORTABS [Concomitant]

REACTIONS (1)
  - DEPENDENCE [None]
